FAERS Safety Report 8403678-0 (Version None)
Quarter: 2012Q2

REPORT INFORMATION
  Report Type: 
  Country: None (occurrence: None)
  Receive Date: 20120601
  Receipt Date: 20110821
  Transmission Date: 20120825
  Serious: No
  Sender: FDA-Public Use
  Company Number: US-NOVEN-11US003016

PATIENT
  Sex: Male
  Weight: 28.571 kg

DRUGS (3)
  1. RISPERDAL [Concomitant]
     Indication: ASPERGER'S DISORDER
     Dosage: 1 MG, QD
     Route: 048
     Dates: start: 20080101
  2. STRATTERA [Concomitant]
     Indication: ATTENTION DEFICIT/HYPERACTIVITY DISORDER
     Dosage: 50 MG, QD
     Route: 048
     Dates: start: 20090101
  3. DAYTRANA [Suspect]
     Indication: PRODUCT USED FOR UNKNOWN INDICATION
     Dosage: 10 MG, QD
     Route: 062
     Dates: start: 20110818

REACTIONS (4)
  - DRUG ADMINISTRATION ERROR [None]
  - PRODUCT QUALITY ISSUE [None]
  - NO ADVERSE EVENT [None]
  - WRONG TECHNIQUE IN DRUG USAGE PROCESS [None]
